FAERS Safety Report 14616140 (Version 1)
Quarter: 2018Q1

REPORT INFORMATION
  Report Type: Spontaneous
  Country: US (occurrence: US)
  Receive Date: 20180309
  Receipt Date: 20180309
  Transmission Date: 20180509
  Serious: No
  Sender: FDA-Public Use
  Company Number: US-HORIZON-KRY-0062-2018

PATIENT

DRUGS (1)
  1. KRYSTEXXA [Suspect]
     Active Substance: PEGLOTICASE
     Indication: PRODUCT USED FOR UNKNOWN INDICATION
     Dosage: DISCONTINUED AFTER 3 INFUSIONS

REACTIONS (3)
  - Confusional state [Unknown]
  - Amnesia [Unknown]
  - Blood uric acid increased [Unknown]
